FAERS Safety Report 17055446 (Version 8)
Quarter: 2025Q2

REPORT INFORMATION
  Report Type: Spontaneous
  Country: US (occurrence: US)
  Receive Date: 20191120
  Receipt Date: 20250502
  Transmission Date: 20250716
  Serious: Yes (Other)
  Sender: PFIZER
  Company Number: US-PFIZER INC-2019500924

PATIENT
  Age: 67 Year
  Sex: Female
  Weight: 59.4 kg

DRUGS (1)
  1. XELJANZ XR [Suspect]
     Active Substance: TOFACITINIB CITRATE
     Dates: start: 201810

REACTIONS (2)
  - Visual impairment [Unknown]
  - Blindness [Unknown]
